FAERS Safety Report 22019876 (Version 1)
Quarter: 2023Q1

REPORT INFORMATION
  Report Type: Spontaneous
  Country: IT (occurrence: IT)
  Receive Date: 20230222
  Receipt Date: 20230222
  Transmission Date: 20230418
  Serious: Yes (Other)
  Sender: FDA-Public Use
  Company Number: None

PATIENT
  Age: 40 Year
  Sex: Female

DRUGS (4)
  1. FLUOROURACIL [Suspect]
     Active Substance: FLUOROURACIL
     Indication: Adenocarcinoma gastric
     Dates: start: 20220103, end: 20220209
  2. OXALIPLATIN [Suspect]
     Active Substance: OXALIPLATIN
     Indication: Adenocarcinoma gastric
     Dates: start: 20220103, end: 20220209
  3. TRASTUZUMAB [Suspect]
     Active Substance: TRASTUZUMAB
     Indication: Adenocarcinoma gastric
     Dates: start: 20220103, end: 20220209
  4. FLUOROURACIL [Suspect]
     Active Substance: FLUOROURACIL
     Indication: Adenocarcinoma gastric
     Dates: start: 20220103, end: 20220209

REACTIONS (3)
  - Hyperamylasaemia [Not Recovered/Not Resolved]
  - Abdominal pain [Recovering/Resolving]
  - Hyperlipasaemia [Not Recovered/Not Resolved]

NARRATIVE: CASE EVENT DATE: 20220113
